FAERS Safety Report 9424227 (Version 1)
Quarter: 2013Q3

REPORT INFORMATION
  Report Type: Spontaneous
  Country: CH (occurrence: CH)
  Receive Date: 20130729
  Receipt Date: 20130729
  Transmission Date: 20140515
  Serious: Yes (Life-Threatening)
  Sender: FDA-Public Use
  Company Number: CH-ACCORD-018744

PATIENT
  Age: 52 Year
  Sex: Female

DRUGS (2)
  1. MYCOPHENOLATE MOFETIL [Suspect]
     Indication: MYOCARDITIS
  2. SIROLIMUS [Suspect]
     Indication: MYOCARDITIS

REACTIONS (4)
  - Colitis [Recovered/Resolved]
  - Cytomegalovirus infection [Recovered/Resolved]
  - Epstein-Barr virus infection [Recovering/Resolving]
  - Off label use [Unknown]
